FAERS Safety Report 24059675 (Version 2)
Quarter: 2024Q3

REPORT INFORMATION
  Report Type: Spontaneous
  Country: FR (occurrence: FR)
  Receive Date: 20240708
  Receipt Date: 20240808
  Transmission Date: 20241016
  Serious: Yes (Hospitalization)
  Sender: ACCORD
  Company Number: None

PATIENT
  Age: 50 Year
  Sex: Female
  Weight: 74 kg

DRUGS (5)
  1. ARIPIPRAZOLE [Suspect]
     Active Substance: ARIPIPRAZOLE
     Indication: Bipolar disorder
     Dates: start: 2014
  2. FLUOXETINE [Suspect]
     Active Substance: FLUOXETINE HYDROCHLORIDE
     Indication: Bipolar disorder
     Dosage: 20 MG/DAY
     Dates: start: 2014
  3. PROPRANOLOL [Suspect]
     Active Substance: PROPRANOLOL HYDROCHLORIDE
     Indication: Migraine
     Dates: start: 2014
  4. TRIHEXYPHENIDYL HYDROCHLORIDE [Suspect]
     Active Substance: TRIHEXYPHENIDYL HYDROCHLORIDE
     Indication: Muscle rigidity
     Dates: start: 2014
  5. ASPIRIN [Suspect]
     Active Substance: ASPIRIN
     Indication: Cardiovascular event prophylaxis
     Dosage: 75 MG, GASTRO-RESISTANT TABLET
     Dates: start: 20150614

REACTIONS (2)
  - Ischaemic stroke [Recovered/Resolved]
  - Pulmonary embolism [Recovered/Resolved]

NARRATIVE: CASE EVENT DATE: 20150613
